FAERS Safety Report 19188884 (Version 1)
Quarter: 2021Q2

REPORT INFORMATION
  Report Type: Spontaneous
  Country: US (occurrence: US)
  Receive Date: 20210428
  Receipt Date: 20210428
  Transmission Date: 20210717
  Serious: Yes (Other)
  Sender: FDA-Public Use
  Company Number: US-MYLANLABS-2021M1024637

PATIENT
  Age: 67 Year
  Sex: Male

DRUGS (9)
  1. BUPRENORPHINE AND NALOXONE SUBLINGUAL FILM [Suspect]
     Active Substance: BUPRENORPHINE HYDROCHLORIDE\NALOXONE HYDROCHLORIDE
     Indication: PAIN
     Dosage: 0.5 MILLIGRAM, QD, DAY 1
     Route: 060
  2. BUPRENORPHINE AND NALOXONE SUBLINGUAL FILM [Suspect]
     Active Substance: BUPRENORPHINE HYDROCHLORIDE\NALOXONE HYDROCHLORIDE
     Dosage: 4 MILLIGRAM, TID, DAY 6; THREE TIMES A DAY
     Route: 060
  3. BUPRENORPHINE AND NALOXONE SUBLINGUAL FILM [Suspect]
     Active Substance: BUPRENORPHINE HYDROCHLORIDE\NALOXONE HYDROCHLORIDE
     Dosage: 2 MILLIGRAM, TID, DAY 5; THREE TIMES A DAY
     Route: 060
  4. BUPRENORPHINE HYDROCHLORIDE SUBLINGUAL TABLETS [Suspect]
     Active Substance: BUPRENORPHINE HYDROCHLORIDE
     Indication: DRUG DEPENDENCE
     Dosage: 8 MILLIGRAM, TID, 3 TIMES DAILY
     Route: 060
  5. BUPRENORPHINE AND NALOXONE SUBLINGUAL FILM [Suspect]
     Active Substance: BUPRENORPHINE HYDROCHLORIDE\NALOXONE HYDROCHLORIDE
     Indication: DRUG DEPENDENCE
     Dosage: 0.5 MILLIGRAM, BID, DAY 2
     Route: 060
  6. HYDROMORPHONE [Suspect]
     Active Substance: HYDROMORPHONE
     Indication: PAIN
     Dosage: 4 MILLIGRAM, 5 TIMES DAILY; AT THE TIME OF INDUCTION; MORPHINE EQUIVALENT DAILY DOSE ? 95MG
     Route: 065
  7. BUPRENORPHINE AND NALOXONE SUBLINGUAL FILM [Suspect]
     Active Substance: BUPRENORPHINE HYDROCHLORIDE\NALOXONE HYDROCHLORIDE
     Dosage: 1 MILLIGRAM, BID, DAY 3
     Route: 060
  8. MORPHINE [Suspect]
     Active Substance: MORPHINE
     Indication: PAIN
     Dosage: 15 MILLIGRAM, QD, EXTENDED RELEASE; AT THE TIME OF INDUCTION; MORPHINE EQUIVALENT DAILY DOSE ? 95MG
     Route: 065
  9. BUPRENORPHINE AND NALOXONE SUBLINGUAL FILM [Suspect]
     Active Substance: BUPRENORPHINE HYDROCHLORIDE\NALOXONE HYDROCHLORIDE
     Dosage: 2 MILLIGRAM, BID, DAY 4
     Route: 060

REACTIONS (2)
  - Drug dependence [Recovering/Resolving]
  - Off label use [Unknown]
